FAERS Safety Report 7271113-4 (Version None)
Quarter: 2011Q1

REPORT INFORMATION
  Report Type: 
  Country: None (occurrence: None)
  Receive Date: 20110202
  Receipt Date: 20110124
  Transmission Date: 20110831
  Serious: Yes (Other)
  Sender: FDA-Public Use
  Company Number: AU-GENENTECH-312978

PATIENT

DRUGS (2)
  1. RITUXIMAB [Suspect]
     Indication: NON-HODGKIN'S LYMPHOMA RECURRENT
     Dosage: 375 MG/M2, UNK
     Route: 065
  2. LUGOL CAP [Concomitant]
     Indication: HYPOTHYROIDISM
     Dosage: UNK

REACTIONS (6)
  - MYELODYSPLASTIC SYNDROME [None]
  - ANAEMIA [None]
  - ACUTE MYELOID LEUKAEMIA [None]
  - HYPOTHYROIDISM [None]
  - NEUTROPENIA [None]
  - THROMBOCYTOPENIA [None]
